FAERS Safety Report 15857764 (Version 1)
Quarter: 2019Q1

REPORT INFORMATION
  Report Type: Spontaneous
  Country: US (occurrence: US)
  Receive Date: 20190123
  Receipt Date: 20190123
  Transmission Date: 20190417
  Serious: Yes (Other)
  Sender: FDA-Public Use
  Company Number: US-PFIZER INC-2019019854

PATIENT
  Age: 57 Year
  Sex: Female

DRUGS (7)
  1. PALBOCICLIB [Suspect]
     Active Substance: PALBOCICLIB
     Indication: BREAST CANCER METASTATIC
     Dosage: 125 MG, DAILY FOR 21 DAYS, FOLLOWED BY 7 DAYS OFF, REPEATED EVERY 28 DAYS
     Route: 048
     Dates: start: 20170405, end: 20170620
  2. AMLODIPINE [Concomitant]
     Active Substance: AMLODIPINE BESYLATE
     Indication: HYPERTENSION
     Dosage: UNK
  3. FULVESTRANT. [Suspect]
     Active Substance: FULVESTRANT
     Dosage: UNK
     Dates: start: 20170824
  4. PALBOCICLIB [Suspect]
     Active Substance: PALBOCICLIB
     Dosage: 100 MG, DAILY
     Route: 048
     Dates: start: 20171130, end: 20171210
  5. LEVOTHYROXINE. [Concomitant]
     Active Substance: LEVOTHYROXINE
     Indication: HYPOTHYROIDISM
     Dosage: UNK
  6. DENOSUMAB [Concomitant]
     Active Substance: DENOSUMAB
  7. FULVESTRANT. [Suspect]
     Active Substance: FULVESTRANT
     Indication: BREAST CANCER METASTATIC
     Dosage: 500 MG, (DAYS 1, 15, AND 29, AND THEN ONCE A MONTH)
     Route: 030
     Dates: start: 201703, end: 20170531

REACTIONS (1)
  - Drug-induced liver injury [Recovered/Resolved]
